FAERS Safety Report 7574248-1 (Version None)
Quarter: 2011Q2

REPORT INFORMATION
  Report Type: 
  Country: None (occurrence: None)
  Receive Date: 20110627
  Receipt Date: 20110511
  Transmission Date: 20111010
  Serious: No
  Sender: FDA-Public Use
  Company Number: US-BAYER-2011-042305

PATIENT
  Age: 64 Year
  Sex: Male
  Weight: 98 kg

DRUGS (5)
  1. MAGNESIUM [Concomitant]
  2. GLUCOSAMINE W/CHONDROITIN SULFATE [Concomitant]
  3. ALEVE (CAPLET) [Suspect]
     Indication: ARTHRITIS
     Dosage: 3 DF, UNK
     Route: 048
     Dates: start: 20110509, end: 20110510
  4. GEMIDERMA [Concomitant]
  5. GINKO BILOBA [Concomitant]

REACTIONS (3)
  - DIZZINESS [None]
  - NAUSEA [None]
  - ERYTHEMA [None]
